FAERS Safety Report 8170625-9 (Version None)
Quarter: 2012Q1

REPORT INFORMATION
  Report Type: 
  Country: None (occurrence: None)
  Receive Date: 20120228
  Receipt Date: 20120218
  Transmission Date: 20120608
  Serious: Yes (Other)
  Sender: FDA-Public Use
  Company Number: DE-ROCHE-1042155

PATIENT
  Age: 24 Year
  Sex: Female
  Weight: 67 kg

DRUGS (3)
  1. PEGINTERFERON ALFA-2A [Suspect]
     Indication: HEPATITIS C
     Route: 058
     Dates: start: 20120118
  2. TELAPREVIR [Suspect]
     Indication: HEPATITIS C
     Dates: start: 20120118
  3. RIBAVIRIN [Concomitant]
     Indication: HEPATITIS C
     Dates: start: 20120118

REACTIONS (1)
  - SKIN DISORDER [None]
